FAERS Safety Report 7080739-2 (Version None)
Quarter: 2010Q4

REPORT INFORMATION
  Report Type: 
  Country: None (occurrence: None)
  Receive Date: 20101022
  Receipt Date: 20101007
  Transmission Date: 20110411
  Serious: Yes (Hospitalization)
  Sender: FDA-Public Use
  Company Number: 2010MA003435

PATIENT
  Age: 28 Year
  Sex: Female

DRUGS (4)
  1. CITALOPRAM HYDROBROMIDE [Suspect]
     Indication: DEPRESSIVE SYMPTOM
     Dosage: 20 MG;
  2. ETODOLAC [Concomitant]
  3. DESOGESTREL ETHINYL [Concomitant]
  4. ESTRADIOL [Concomitant]

REACTIONS (4)
  - CEREBRAL ARTERY STENOSIS [None]
  - CEREBRAL VASOCONSTRICTION [None]
  - CONDITION AGGRAVATED [None]
  - ISCHAEMIC STROKE [None]
